FAERS Safety Report 21033594 (Version 1)
Quarter: 2022Q3

REPORT INFORMATION
  Report Type: Spontaneous
  Country: CA (occurrence: CA)
  Receive Date: 20220701
  Receipt Date: 20220701
  Transmission Date: 20221027
  Serious: Yes (Other)
  Sender: FDA-Public Use
  Company Number: CA-PFIZER INC-PV202200012194

PATIENT
  Age: 11 Year
  Sex: Female

DRUGS (2)
  1. SIROLIMUS [Suspect]
     Active Substance: SIROLIMUS
     Indication: Lymphadenopathy
     Dosage: 2 MG, DAILY
     Route: 048
     Dates: start: 201608, end: 202202
  2. PREDNISONE [Concomitant]
     Active Substance: PREDNISONE
     Dosage: UNK

REACTIONS (4)
  - Haemoglobin decreased [Unknown]
  - Lymphocyte count increased [Unknown]
  - Off label use [Unknown]
  - Off label use [Unknown]
